FAERS Safety Report 7101894-1 (Version None)
Quarter: 2010Q4

REPORT INFORMATION
  Report Type: 
  Country: None (occurrence: None)
  Receive Date: 20101108
  Receipt Date: 20101029
  Transmission Date: 20110411
  Serious: No
  Sender: FDA-Public Use
  Company Number: TCI2010A03222

PATIENT
  Age: 94 Year
  Sex: Female

DRUGS (7)
  1. ROZEREM TABLETS 8MG (RAMELTON) [Suspect]
     Indication: INSOMNIA
     Dosage: 8 MG (8 MG, 1 IN 1 D), PER ORAL
     Route: 048
     Dates: start: 20100807, end: 20100811
  2. BENET TABLETS (RISEDRONATE SODIUM) [Concomitant]
  3. CONIEL (BENIDIPINE HYDROCHLORIDE) [Concomitant]
  4. PREMINIENT (HYDROCHLOROTHIAZIDE, LOSARTAN POTASSIUM) [Concomitant]
  5. LIVALO (ITAVASTATIN CALCIUM) [Concomitant]
  6. OMEPRAZOLE [Concomitant]
  7. MAGNESIUM OXIDE [Concomitant]

REACTIONS (1)
  - HALLUCINATION, AUDITORY [None]
